FAERS Safety Report 5851894-4 (Version None)
Quarter: 2008Q3

REPORT INFORMATION
  Report Type: 
  Country: None (occurrence: None)
  Receive Date: 20080820
  Receipt Date: 20080808
  Transmission Date: 20090109
  Serious: Yes (Other)
  Sender: FDA-Public Use
  Company Number: US-PFIZER INC-2005103302

PATIENT
  Sex: Female

DRUGS (10)
  1. NEURONTIN [Suspect]
     Indication: PAIN
  2. NEURONTIN [Suspect]
     Indication: CONVULSION
  3. ALUPENT [Concomitant]
  4. AMBIEN [Concomitant]
  5. OMEPRAZOLE [Concomitant]
     Dates: start: 20020616
  6. PRAVACHOL [Concomitant]
     Dates: start: 20020114
  7. PRILOSEC [Concomitant]
  8. SYNTHROID [Concomitant]
  9. CELEBREX [Concomitant]
     Dates: start: 20020114
  10. ZOLOFT [Concomitant]
     Dosage: DAILY DOSE:100MG

REACTIONS (3)
  - AGGRESSION [None]
  - DRUG INEFFECTIVE [None]
  - SUICIDE ATTEMPT [None]
